FAERS Safety Report 9432593 (Version 4)
Quarter: 2014Q1

REPORT INFORMATION
  Report Type: Report from Study
  Country: JP (occurrence: JP)
  Receive Date: 20130731
  Receipt Date: 20140128
  Transmission Date: 20141002
  Serious: Yes (Hospitalization)
  Sender: FDA-Public Use
  Company Number: JP-PFIZER INC-2013218945

PATIENT
  Age: 48 Year
  Sex: Male
  Weight: 59.3 kg

DRUGS (23)
  1. CRIZOTINIB [Suspect]
     Indication: NON-SMALL CELL LUNG CANCER
     Dosage: 250 MG, 2X/DAY
     Route: 048
     Dates: start: 20130214, end: 20130408
  2. CRIZOTINIB [Suspect]
     Dosage: 250 MG, 2X/DAY
     Route: 048
     Dates: start: 20130416, end: 20130708
  3. MUCOSTA [Concomitant]
     Dosage: 100 MG, 3X/DAY
     Route: 048
     Dates: start: 20110811, end: 20130414
  4. CALCIUM LACTATE [Concomitant]
     Dosage: 3 G, 3X/DAY
     Route: 048
     Dates: start: 20130201, end: 20130414
  5. MAGNESIUM OXIDE [Concomitant]
     Dosage: 0.66 G, 2X/DAY
     Route: 048
     Dates: start: 20130201
  6. NAIXAN [Concomitant]
     Dosage: 100 MG, 3X/DAY
     Route: 048
     Dates: start: 20130201, end: 20130414
  7. GASCON [Concomitant]
     Dosage: 40 MG, 3X/DAY
     Route: 048
     Dates: start: 20130201, end: 20130414
  8. EVIPROSTAT [Concomitant]
     Dosage: 1 DF, 3X/DAY
     Route: 048
     Dates: start: 20130201, end: 20130414
  9. LASIX [Concomitant]
     Dosage: 10 MG, 1X/DAY
     Route: 048
     Dates: start: 20130201, end: 20130414
  10. VESICARE [Concomitant]
     Dosage: 5 MG, 1X/DAY
     Route: 048
     Dates: start: 20130201, end: 20130414
  11. LENDORMIN D [Concomitant]
     Dosage: 0.25 MG, 1X/DAY
     Route: 048
     Dates: start: 20110818, end: 20130414
  12. OXYCONTIN [Concomitant]
     Dosage: 10 MG, 2X/DAY
     Route: 048
     Dates: start: 20130201, end: 20130407
  13. BIOFERMIN [Concomitant]
     Dosage: 1 G, 3X/DAY
     Route: 048
     Dates: start: 20130411
  14. DAI-KENCHU-TO [Concomitant]
     Dosage: 2.5 G, 3X/DAY
     Route: 048
     Dates: start: 20130411
  15. CETILO [Concomitant]
     Dosage: UNK
     Route: 048
     Dates: start: 20130420
  16. AMITIZA [Concomitant]
     Dosage: 24 UG, 2X/DAY
     Route: 048
     Dates: start: 20130413
  17. PARIET [Concomitant]
     Dosage: 10 MG, 1X/DAY
     Route: 048
     Dates: start: 20130419
  18. CELECOX [Concomitant]
     Dosage: 200 MG, 2X/DAY
     Route: 048
     Dates: start: 20130422
  19. LYRICA [Concomitant]
     Dosage: 25 MG, 1X/DAY
     Route: 048
     Dates: start: 20130507
  20. PURSENNID [Concomitant]
     Dosage: 48 MG, 1X/DAY
     Route: 048
     Dates: start: 20130419
  21. CEFMETAZOLE SODIUM [Concomitant]
     Dosage: 1 G, 2X/DAY
     Dates: start: 20130408, end: 20130415
  22. SOLYUGEN G [Concomitant]
     Dosage: 500 ML, 2X/DAY
     Dates: start: 20130408, end: 20130415
  23. ONE-ALPHA [Concomitant]
     Dosage: 0.5 UG, 1X/DAY
     Route: 048
     Dates: start: 20130201, end: 20130414

REACTIONS (3)
  - Intestinal obstruction [Recovering/Resolving]
  - Oesophageal perforation [Recovering/Resolving]
  - Mediastinitis [Recovering/Resolving]
